FAERS Safety Report 10332696 (Version 3)
Quarter: 2014Q4

REPORT INFORMATION
  Report Type: Spontaneous
  Country: JP (occurrence: JP)
  Receive Date: 20140722
  Receipt Date: 20141029
  Transmission Date: 20150528
  Serious: Yes (Other)
  Sender: FDA-Public Use
  Company Number: PHHY2014JP089464

PATIENT
  Age: 70 Year
  Sex: Male
  Weight: 40 kg

DRUGS (1)
  1. ZOMETA [Suspect]
     Active Substance: ZOLEDRONIC ACID
     Indication: PLASMA CELL MYELOMA
     Dosage: 4 MG, QD
     Route: 041
     Dates: start: 20090805, end: 20110407

REACTIONS (10)
  - Swelling [Recovered/Resolved]
  - Impaired healing [Unknown]
  - Periodontal disease [Recovered/Resolved]
  - Pain [Recovered/Resolved]
  - Nervous system disorder [Recovering/Resolving]
  - Purulent discharge [Recovered/Resolved]
  - Gingivitis [Recovered/Resolved]
  - Osteonecrosis of jaw [Recovering/Resolving]
  - Gingival erythema [Recovered/Resolved]
  - Dysaesthesia [Recovered/Resolved]

NARRATIVE: CASE EVENT DATE: 20110316
